FAERS Safety Report 20422985 (Version 1)
Quarter: 2022Q1

REPORT INFORMATION
  Report Type: Spontaneous
  Country: JP (occurrence: JP)
  Receive Date: 20220203
  Receipt Date: 20220203
  Transmission Date: 20220423
  Serious: Yes (Hospitalization)
  Sender: FDA-Public Use
  Company Number: JP-Eisai-202111214_DVG_P_1

PATIENT
  Age: 57 Year
  Sex: Male

DRUGS (9)
  1. LEMBOREXANT [Suspect]
     Active Substance: LEMBOREXANT
     Indication: Bipolar disorder
     Route: 048
  2. ZOTEPINE [Suspect]
     Active Substance: ZOTEPINE
     Indication: Bipolar disorder
     Route: 048
  3. ZOTEPINE [Suspect]
     Active Substance: ZOTEPINE
     Route: 048
  4. HERBALS [Suspect]
     Active Substance: HERBALS
     Indication: Product used for unknown indication
     Route: 065
  5. RAMELTEON [Suspect]
     Active Substance: RAMELTEON
     Indication: Product used for unknown indication
     Route: 065
  6. FLUNITRAZEPAM [Concomitant]
     Active Substance: FLUNITRAZEPAM
     Indication: Bipolar disorder
     Route: 048
  7. BIPERIDEN HYDROCHLORIDE [Concomitant]
     Active Substance: BIPERIDEN HYDROCHLORIDE
     Indication: Bipolar disorder
     Route: 048
  8. VALPROATE SODIUM [Concomitant]
     Active Substance: VALPROATE SODIUM
     Indication: Bipolar disorder
     Route: 048
  9. VALPROATE SODIUM [Concomitant]
     Active Substance: VALPROATE SODIUM
     Route: 048

REACTIONS (3)
  - Sedation complication [Unknown]
  - Oral discharge [Unknown]
  - Pneumonia aspiration [Unknown]
